FAERS Safety Report 7221943-X (Version None)
Quarter: 2011Q1

REPORT INFORMATION
  Report Type: 
  Country: None (occurrence: None)
  Receive Date: 20110112
  Receipt Date: 20110111
  Transmission Date: 20110831
  Serious: Yes (Hospitalization)
  Sender: FDA-Public Use
  Company Number: B0686500A

PATIENT
  Sex: Female
  Weight: 10 kg

DRUGS (1)
  1. AUGMENTIN [Suspect]
     Dosage: 1UNIT THREE TIMES PER DAY
     Route: 048
     Dates: start: 20101110, end: 20101114

REACTIONS (2)
  - RASH MACULO-PAPULAR [None]
  - PRURITUS [None]
